FAERS Safety Report 22651920 (Version 2)
Quarter: 2023Q4

REPORT INFORMATION
  Report Type: Spontaneous
  Country: FR (occurrence: FR)
  Receive Date: 20230628
  Receipt Date: 20231025
  Transmission Date: 20240110
  Serious: Yes (Hospitalization)
  Sender: FDA-Public Use
  Company Number: None

PATIENT
  Age: 81 Year
  Sex: Female

DRUGS (1)
  1. ELTROMBOPAG OLAMINE [Suspect]
     Active Substance: ELTROMBOPAG OLAMINE
     Indication: Immune thrombocytopenia
     Dosage: 50 MG, QD
     Route: 048
     Dates: start: 2020, end: 20230505

REACTIONS (6)
  - Pulmonary thrombosis [Recovered/Resolved]
  - Splenic thrombosis [Recovered/Resolved]
  - Pulmonary embolism [Recovered/Resolved]
  - Renal vascular thrombosis [Recovered/Resolved]
  - Cardiogenic shock [Recovered/Resolved]
  - Pulmonary arterial hypertension [Recovered/Resolved with Sequelae]

NARRATIVE: CASE EVENT DATE: 20230505
